FAERS Safety Report 10031612 (Version 2)
Quarter: 2015Q1

REPORT INFORMATION
  Report Type: Spontaneous
  Country: US (occurrence: US)
  Receive Date: 20140324
  Receipt Date: 20150129
  Transmission Date: 20150720
  Serious: No
  Sender: FDA-Public Use
  Company Number: US-PFIZER INC-2014081047

PATIENT
  Age: 78 Year
  Sex: Female

DRUGS (6)
  1. TOPROL XL [Suspect]
     Active Substance: METOPROLOL SUCCINATE
     Dosage: UNK
  2. CEPHALEXIN. [Suspect]
     Active Substance: CEPHALEXIN
     Dosage: UNK
  3. PROTONIX [Suspect]
     Active Substance: PANTOPRAZOLE SODIUM
     Dosage: UNK
  4. BIAXIN [Suspect]
     Active Substance: CLARITHROMYCIN
     Dosage: UNK
  5. ZITHROMAX [Suspect]
     Active Substance: AZITHROMYCIN DIHYDRATE
     Dosage: UNK
  6. CELEBREX [Suspect]
     Active Substance: CELECOXIB
     Dosage: UNK

REACTIONS (1)
  - Drug hypersensitivity [Unknown]
